FAERS Safety Report 14144318 (Version 2)
Quarter: 2017Q4

REPORT INFORMATION
  Report Type: Spontaneous
  Country: US (occurrence: US)
  Receive Date: 20171031
  Receipt Date: 20171120
  Transmission Date: 20180321
  Serious: No
  Sender: FDA-Public Use
  Company Number: US-PFIZER INC-2017467237

PATIENT
  Age: 43 Year
  Sex: Female
  Weight: 77.11 kg

DRUGS (1)
  1. LYRICA [Suspect]
     Active Substance: PREGABALIN
     Indication: FIBROMYALGIA
     Dosage: UNK

REACTIONS (10)
  - Headache [Unknown]
  - Malaise [Not Recovered/Not Resolved]
  - Disturbance in attention [Unknown]
  - Emotional disorder [Unknown]
  - Feeling abnormal [Unknown]
  - Drug effect incomplete [Unknown]
  - Memory impairment [Unknown]
  - Condition aggravated [Unknown]
  - Pain [Unknown]
  - Withdrawal syndrome [Unknown]
